FAERS Safety Report 8035905-6 (Version None)
Quarter: 2012Q1

REPORT INFORMATION
  Report Type: 
  Country: None (occurrence: None)
  Receive Date: 20120111
  Receipt Date: 20120111
  Transmission Date: 20120608
  Serious: Yes (Other)
  Sender: FDA-Public Use
  Company Number: None

PATIENT
  Sex: Female
  Weight: 65.77 kg

DRUGS (1)
  1. TAMIFLU [Suspect]
     Indication: INFLUENZA
     Dosage: I
     Route: 048
     Dates: start: 20120106, end: 20120109

REACTIONS (5)
  - DISTURBANCE IN ATTENTION [None]
  - IMPAIRED DRIVING ABILITY [None]
  - DIZZINESS [None]
  - CONFUSIONAL STATE [None]
  - DISORIENTATION [None]
